FAERS Safety Report 14554756 (Version 1)
Quarter: 2018Q1

REPORT INFORMATION
  Report Type: Report from Study
  Country: BE (occurrence: BE)
  Receive Date: 20180220
  Receipt Date: 20180220
  Transmission Date: 20180509
  Serious: Yes (Death, Hospitalization)
  Sender: FDA-Public Use
  Company Number: BE-PFIZER INC-2016463682

PATIENT
  Age: 6 Year
  Sex: Male
  Weight: 19.5 kg

DRUGS (9)
  1. RANITIDINE. [Concomitant]
     Active Substance: RANITIDINE
     Dosage: 75 MG, 2X/DAY
     Dates: start: 20160318
  2. INOTUZUMAB OZOGAMICIN [Suspect]
     Active Substance: INOTUZUMAB OZOGAMICIN
     Dosage: 0.4 MG/M2, WEEKLY
     Route: 042
     Dates: start: 20160927
  3. EUSAPRIM [Concomitant]
     Active Substance: SULFAMETHOXAZOLE\TRIMETHOPRIM
     Dosage: 80 MG, 2X/WEEK
     Dates: start: 20160319
  4. MULTIGAM [Concomitant]
     Active Substance: HUMAN IMMUNOGLOBULIN G
     Dosage: 8 G, MONTHLY
     Dates: start: 20160318
  5. FORLAX [Concomitant]
     Active Substance: POLYETHYLENE GLYCOL 4000
     Dosage: 0.5 DF, 1X/DAY (HALF A BAG A DAY)
     Dates: start: 20160905
  6. INOTUZUMAB OZOGAMICIN [Suspect]
     Active Substance: INOTUZUMAB OZOGAMICIN
     Dosage: 0.4 MG/M2, WEEKLY
     Route: 042
     Dates: start: 20160920
  7. INOTUZUMAB OZOGAMICIN [Suspect]
     Active Substance: INOTUZUMAB OZOGAMICIN
     Indication: ACUTE LYMPHOCYTIC LEUKAEMIA RECURRENT
     Dosage: 0.65 MG/M2, WEEKLY
     Route: 042
     Dates: start: 20160913, end: 20160919
  8. HYDROCORTISONE. [Concomitant]
     Active Substance: HYDROCORTISONE
     Dosage: 3 MG, 3X/DAY
     Dates: start: 20160809
  9. PENI-ORAL [Concomitant]
     Dosage: 50000 IU, UNK
     Dates: start: 20160319

REACTIONS (1)
  - Pancreatitis [Not Recovered/Not Resolved]

NARRATIVE: CASE EVENT DATE: 20161003
